FAERS Safety Report 7012834-8 (Version None)
Quarter: 2010Q3

REPORT INFORMATION
  Report Type: 
  Country: None (occurrence: None)
  Receive Date: 20100924
  Receipt Date: 20100917
  Transmission Date: 20110219
  Serious: Yes (Hospitalization, Other)
  Sender: FDA-Public Use
  Company Number: B0675802A

PATIENT
  Sex: Female
  Weight: 60 kg

DRUGS (2)
  1. RITMONORM [Suspect]
     Indication: WOLFF-PARKINSON-WHITE SYNDROME
     Dosage: 300MG PER DAY
     Route: 048
  2. DIANE [Concomitant]
     Indication: CONTRACEPTION
     Dosage: 2MG PER DAY
     Dates: start: 20100201

REACTIONS (4)
  - ARRHYTHMIA [None]
  - CARDIAC FAILURE [None]
  - CHEST PAIN [None]
  - HEADACHE [None]
